FAERS Safety Report 12573480 (Version 8)
Quarter: 2019Q2

REPORT INFORMATION
  Report Type: Spontaneous
  Country: US (occurrence: US)
  Receive Date: 20160720
  Receipt Date: 20190513
  Transmission Date: 20190711
  Serious: No
  Sender: FDA-Public Use
  Company Number: US-PFIZER INC-2016317519

PATIENT
  Age: 61 Year
  Sex: Male
  Weight: 84 kg

DRUGS (19)
  1. TYVASO [Concomitant]
     Active Substance: TREPROSTINIL
     Indication: PULMONARY HYPERTENSION
  2. NORVASC [Concomitant]
     Active Substance: AMLODIPINE BESYLATE
     Dosage: 5 MG, DAILY
     Route: 048
  3. LIDEX [Concomitant]
     Active Substance: FLUOCINONIDE
     Dosage: UNK, AS NEEDED (TWICE DAILY)
     Route: 061
  4. CAUMADIN [Concomitant]
     Active Substance: WARFARIN SODIUM
     Dosage: 5 MG TO 7.5 MG, ONCE DAILY (EVERY 24 HOURS)
     Route: 048
  5. REVATIO [Suspect]
     Active Substance: SILDENAFIL CITRATE
     Indication: PULMONARY ARTERIAL HYPERTENSION
     Dosage: 20 MG, THRICE DAILY
     Route: 048
  6. REVATIO [Suspect]
     Active Substance: SILDENAFIL CITRATE
     Dosage: 40 MG, THRICE DAILY
     Route: 048
     Dates: start: 201903
  7. REVATIO [Suspect]
     Active Substance: SILDENAFIL CITRATE
     Dosage: 20 MG, EVERY 4 HOURS (SIX TIMES DAILY)
     Route: 048
  8. AMARYL [Concomitant]
     Active Substance: GLIMEPIRIDE
     Dosage: 1 MG, THRICE DAILY
     Route: 048
  9. LYRICA [Concomitant]
     Active Substance: PREGABALIN
     Dosage: UNK
     Dates: start: 20190211
  10. TYVASO [Concomitant]
     Active Substance: TREPROSTINIL
     Indication: HYPOTENSION
     Dosage: 18 UG, FOUR TIMES DAILY
     Route: 055
     Dates: start: 201501
  11. TENORMIN [Concomitant]
     Active Substance: ATENOLOL
     Dosage: 50 MG, TWICE DAILY
     Route: 048
  12. AVAPRO [Concomitant]
     Active Substance: IRBESARTAN
     Dosage: 150 MG, ONCE DAILY
     Route: 048
  13. DOXYCYCLINE. [Concomitant]
     Active Substance: DOXYCYCLINE
     Dosage: UNK
  14. REVATIO [Suspect]
     Active Substance: SILDENAFIL CITRATE
     Dosage: 20 MG, ONCE DAILY
     Route: 048
     Dates: start: 2011
  15. KENALOG [Concomitant]
     Active Substance: TRIAMCINOLONE ACETONIDE
     Dosage: UNK, THRICE DAILY
     Route: 061
  16. GLUCOPHAGE [Concomitant]
     Active Substance: METFORMIN HYDROCHLORIDE
     Dosage: 850 MG, THRICE DAILY (WITH MEALS)
     Route: 048
  17. LASIX [Concomitant]
     Active Substance: FUROSEMIDE
     Dosage: 60 MG, ONCE DAILY (EVERY 24 HOURS)
     Route: 048
  18. LETAIRIS [Concomitant]
     Active Substance: AMBRISENTAN
     Indication: PULMONARY ARTERIAL HYPERTENSION
     Dosage: 10 MG, ONCE DAILY
     Route: 048
     Dates: start: 201306
  19. METFORMIN [Concomitant]
     Active Substance: METFORMIN HYDROCHLORIDE
     Dosage: UNK
     Dates: start: 200701

REACTIONS (4)
  - Product use issue [Unknown]
  - Prescribed overdose [Unknown]
  - Nasopharyngitis [Recovered/Resolved]
  - Off label use [Unknown]

NARRATIVE: CASE EVENT DATE: 2011
